FAERS Safety Report 6416821-X (Version None)
Quarter: 2009Q4

REPORT INFORMATION
  Report Type: 
  Country: None (occurrence: None)
  Receive Date: 20091027
  Receipt Date: 20091013
  Transmission Date: 20100525
  Serious: Yes (Other)
  Sender: FDA-Public Use
  Company Number: FR-MYLANLABS-2009S1017808

PATIENT
  Age: 5 Decade
  Sex: Female

DRUGS (1)
  1. FENTANYL-100 [Suspect]
     Indication: DRUG USE FOR UNKNOWN INDICATION
     Dosage: 12 UG/HOUR
     Route: 062

REACTIONS (2)
  - ANAPHYLACTIC REACTION [None]
  - TYPE II HYPERSENSITIVITY [None]
